FAERS Safety Report 4933550-X (Version None)
Quarter: 2006Q1

REPORT INFORMATION
  Report Type: 
  Country: None (occurrence: None)
  Receive Date: 20060117
  Receipt Date: 20050926
  Transmission Date: 20060701
  Serious: Yes (Other)
  Sender: FDA-Public Use
  Company Number: 2005134439

PATIENT
  Age: 75 Year
  Sex: Female
  Weight: 55.3388 kg

DRUGS (1)
  1. MACUGEN [Suspect]
     Indication: MACULAR DEGENERATION
     Dosage: INTRAVITREOUS
     Dates: start: 20050914

REACTIONS (1)
  - VISUAL DISTURBANCE [None]
